FAERS Safety Report 7137849-0 (Version None)
Quarter: 2010Q4

REPORT INFORMATION
  Report Type: 
  Country: None (occurrence: None)
  Receive Date: 20101119
  Receipt Date: 20101102
  Transmission Date: 20110411
  Serious: Yes (Hospitalization, Other)
  Sender: FDA-Public Use
  Company Number: 2010P1002360

PATIENT
  Age: 80 Year
  Sex: Female

DRUGS (9)
  1. LEVETIRACETAM [Suspect]
     Indication: CONVULSION
     Dosage: 1000 MG; BID; PO, 250 MG;BID;PO
     Route: 048
     Dates: start: 20020101, end: 20070101
  2. LEVETIRACETAM [Suspect]
     Indication: CONVULSION
     Dosage: 1000 MG; BID; PO, 250 MG;BID;PO
     Route: 048
     Dates: start: 20070101, end: 20070101
  3. LEVETIRACETAM [Suspect]
     Indication: CONVULSION
     Dosage: 1000 MG; BID; PO, 250 MG;BID;PO
     Route: 048
     Dates: start: 20070101
  4. VERAPAMIL [Concomitant]
  5. PROPRANOLOL [Concomitant]
  6. METFORMIN HCL [Concomitant]
  7. OXAZEPAM [Concomitant]
  8. ESCITALOPRAM [Concomitant]
  9. LEVODOPA/BENSERAZIDE [Concomitant]

REACTIONS (6)
  - ANTICONVULSANT DRUG LEVEL ABOVE THERAPEUTIC [None]
  - CEREBROVASCULAR DISORDER [None]
  - CONFUSIONAL STATE [None]
  - DRUG TOXICITY [None]
  - METABOLIC ENCEPHALOPATHY [None]
  - MYOCLONUS [None]
